FAERS Safety Report 11981774 (Version 1)
Quarter: 2016Q1

REPORT INFORMATION
  Report Type: Spontaneous
  Country: IT (occurrence: IT)
  Receive Date: 20160131
  Receipt Date: 20160131
  Transmission Date: 20160526
  Serious: Yes (Disabling)
  Sender: FDA-Public Use
  Company Number: IT-TEVA-628234ACC

PATIENT
  Age: 61 Year
  Sex: Male
  Weight: 60 kg

DRUGS (5)
  1. TEPADINA [Concomitant]
     Active Substance: THIOTEPA
     Indication: ADJUVANT THERAPY
     Dosage: 295 MG/M2
     Route: 042
     Dates: start: 20151010, end: 20151011
  2. SANDIMMUN - 50 MG/ML CONCENTRATO PER SOLUZIONE PER INFUSIONE [Interacting]
     Active Substance: CYCLOSPORINE
     Indication: PROPHYLAXIS AGAINST TRANSPLANT REJECTION
     Dosage: 120 MILLIGRAM DAILY; 120 MG DAILY
     Route: 042
     Dates: start: 20151015, end: 20151118
  3. METHOTREXATE - 50 MG POLVERE PER SOLUZIONE INIETTABILE [Concomitant]
     Indication: ADJUVANT THERAPY
     Dosage: 43 MG
     Route: 042
     Dates: start: 20151017, end: 20151022
  4. BUSILVEX - 6 MG/ML CONCENTRATO PER SOLUZIONE PER INFUSIONE [Concomitant]
     Active Substance: BUSULFAN
     Indication: ADJUVANT THERAPY
     Dosage: 190 MG/M2
     Route: 042
     Dates: start: 20151012, end: 20151013
  5. FLUDARABINA TEVA [Suspect]
     Active Substance: FLUDARABINE PHOSPHATE
     Indication: ACUTE MYELOID LEUKAEMIA
     Dosage: 85.5 MG/M2 DAILY; 85.5 MG/M2 DAILY
     Route: 042
     Dates: start: 20151012, end: 20151014

REACTIONS (3)
  - Coma [Not Recovered/Not Resolved]
  - Drug interaction [Unknown]
  - Encephalopathy [Not Recovered/Not Resolved]

NARRATIVE: CASE EVENT DATE: 20151110
